FAERS Safety Report 5976067-6 (Version None)
Quarter: 2008Q4

REPORT INFORMATION
  Report Type: 
  Country: None (occurrence: None)
  Receive Date: 20081202
  Receipt Date: 20081120
  Transmission Date: 20090506
  Serious: Yes (Death, Hospitalization)
  Sender: FDA-Public Use
  Company Number: JP-ABBOTT-08P-087-0490300-00

PATIENT
  Age: 74 Year
  Sex: Male

DRUGS (7)
  1. LEUPROLIDE ACETATE [Suspect]
     Indication: PROSTATE CANCER STAGE IV
     Route: 058
     Dates: start: 20060811, end: 20080206
  2. BICALUTAMIDE [Concomitant]
     Indication: PROSTATE CANCER STAGE IV
     Route: 048
     Dates: start: 20060317, end: 20070323
  3. FOSFESTROL TETRASODIUM [Concomitant]
     Indication: PROSTATE CANCER STAGE IV
     Route: 042
     Dates: start: 20060302, end: 20060311
  4. FOSFESTROL TETRASODIUM [Concomitant]
     Route: 042
     Dates: start: 20070323, end: 20070404
  5. FOSFESTROL TETRASODIUM [Concomitant]
     Route: 048
     Dates: start: 20070405, end: 20071223
  6. ETHINYL ESTRADIOL TAB [Concomitant]
     Indication: PROSTATE CANCER STAGE IV
     Route: 048
     Dates: start: 20071226, end: 20080514
  7. NAFTOPIDIL [Concomitant]
     Indication: BENIGN PROSTATIC HYPERPLASIA
     Route: 048
     Dates: start: 20060401, end: 20080514

REACTIONS (1)
  - PROSTATE CANCER [None]
